FAERS Safety Report 8312813 (Version 2)
Quarter: 2012Q4

REPORT INFORMATION
  Report Type: 
  Country: US (occurrence: US)
  Receive Date: 20111227
  Receipt Date: 20121227
  Transmission Date: 20130627
  Serious: Yes (Other)
  Sender: FDA-Public Use
  Company Number: US-ASTRAZENECA-2011SE76172

PATIENT
  Age: 63 Year
  Sex: Female

DRUGS (1)
  1. CRESTOR [Suspect]
     Route: 048

REACTIONS (7)
  - Cardiac disorder [Unknown]
  - Ill-defined disorder [Unknown]
  - Bronchitis [Unknown]
  - Glucose tolerance impaired [Unknown]
  - Nasopharyngitis [Unknown]
  - Malaise [Unknown]
  - Blood cholesterol increased [Unknown]
